FAERS Safety Report 10344251 (Version 1)
Quarter: 2014Q3

REPORT INFORMATION
  Report Type: Spontaneous
  Country: US (occurrence: None)
  Receive Date: 20140724
  Receipt Date: 20140724
  Transmission Date: 20150326
  Serious: Yes (Other)
  Sender: FDA-Public Use
  Company Number: None

PATIENT
  Age: 25 Year
  Sex: Female
  Weight: 94.35 kg

DRUGS (2)
  1. SEROQUEL [Suspect]
     Active Substance: QUETIAPINE FUMARATE
     Indication: INSOMNIA
     Dosage: 2 TALBETS TWICE DAILY TAKEN BY MOUTH
     Route: 048
     Dates: start: 20140312, end: 20140716
  2. SEROQUEL [Suspect]
     Active Substance: QUETIAPINE FUMARATE
     Indication: BIPOLAR DISORDER
     Dosage: 2 TALBETS TWICE DAILY TAKEN BY MOUTH
     Route: 048
     Dates: start: 20140312, end: 20140716

REACTIONS (24)
  - Chest discomfort [None]
  - Decreased appetite [None]
  - Confusional state [None]
  - Crying [None]
  - Panic attack [None]
  - Muscle rigidity [None]
  - Breath odour [None]
  - Tachycardia [None]
  - Migraine [None]
  - Dizziness postural [None]
  - Ataxia [None]
  - Nausea [None]
  - Micturition urgency [None]
  - Saliva altered [None]
  - Tremor [None]
  - Sleep terror [None]
  - Speech disorder [None]
  - Vision blurred [None]
  - Conversion disorder [None]
  - Thirst [None]
  - Sedation [None]
  - Agitation [None]
  - Fear of death [None]
  - Depression [None]

NARRATIVE: CASE EVENT DATE: 20140716
